FAERS Safety Report 4538873-4 (Version None)
Quarter: 2004Q4

REPORT INFORMATION
  Report Type: 
  Country: None (occurrence: None)
  Receive Date: 20041222
  Receipt Date: 20041208
  Transmission Date: 20050328
  Serious: Yes (Death, Other)
  Sender: FDA-Public Use
  Company Number: US_031299506

PATIENT
  Age: 26 Year
  Sex: Male
  Weight: 70 kg

DRUGS (1)
  1. ZYPREXA [Suspect]
     Indication: PSYCHOTIC DISORDER
     Dosage: 10 MG/2
     Dates: start: 19990101, end: 20020629

REACTIONS (11)
  - ACCIDENTAL DEATH [None]
  - ALCOHOL USE [None]
  - DEHYDRATION [None]
  - DIABETIC HYPEROSMOLAR COMA [None]
  - ELECTROLYTE IMBALANCE [None]
  - FEAR [None]
  - HALLUCINATIONS, MIXED [None]
  - HYPERGLYCAEMIA [None]
  - PANCREATITIS [None]
  - PULMONARY CONGESTION [None]
  - THERAPEUTIC AGENT TOXICITY [None]
